FAERS Safety Report 23907963 (Version 1)
Quarter: 2024Q2

REPORT INFORMATION
  Report Type: Spontaneous
  Country: IL (occurrence: IL)
  Receive Date: 20240528
  Receipt Date: 20240528
  Transmission Date: 20240716
  Serious: Yes (Hospitalization, Disabling)
  Sender: FDA-Public Use
  Company Number: IL-AMERICAN REGENT INC-2024001983

PATIENT
  Age: 38 Year
  Sex: Female

DRUGS (1)
  1. FERINJECT [Suspect]
     Active Substance: FERRIC CARBOXYMALTOSE
     Indication: Product used for unknown indication
     Dosage: 500 MILLIGRAM
     Route: 042
     Dates: start: 20220524

REACTIONS (6)
  - Tooth injury [Unknown]
  - Inflammation [Unknown]
  - Abscess [Unknown]
  - Pain [Unknown]
  - Cellulitis [Unknown]
  - Migraine [Unknown]
